FAERS Safety Report 9685131 (Version 1)
Quarter: 2013Q4

REPORT INFORMATION
  Report Type: Spontaneous
  Country: US (occurrence: None)
  Receive Date: 20131111
  Receipt Date: 20131111
  Transmission Date: 20140711
  Serious: Yes (Disabling, Other)
  Sender: FDA-Public Use
  Company Number: None

PATIENT
  Age: 56 Year
  Sex: Female
  Weight: 52.16 kg

DRUGS (1)
  1. CYMBALTA 60 MG ELI LILL [Suspect]
     Indication: DEPRESSION
     Route: 048

REACTIONS (2)
  - Drug interaction [None]
  - Hepatic enzyme increased [None]
